FAERS Safety Report 18193653 (Version 1)
Quarter: 2020Q3

REPORT INFORMATION
  Report Type: Spontaneous
  Country: US (occurrence: US)
  Receive Date: 20200825
  Receipt Date: 20200825
  Transmission Date: 20201103
  Serious: No
  Sender: FDA-Public Use
  Company Number: US-MICRO LABS LIMITED-ML2020-02011

PATIENT
  Sex: Male
  Weight: 74.91 kg

DRUGS (4)
  1. DORZOLAMIDE [Suspect]
     Active Substance: DORZOLAMIDE
     Indication: OCULAR HYPERTENSION
     Dosage: ONE DROP IN EACH EYE
     Route: 047
     Dates: start: 2020
  2. VITAMIN B [Concomitant]
     Active Substance: VITAMIN B
  3. VITAMIN C [Concomitant]
     Active Substance: ASCORBIC ACID
  4. PROBIOTIC ALIGN [Concomitant]

REACTIONS (1)
  - Eye colour change [Recovered/Resolved]

NARRATIVE: CASE EVENT DATE: 2020
